FAERS Safety Report 4937325-7 (Version None)
Quarter: 2006Q1

REPORT INFORMATION
  Report Type: 
  Country: None (occurrence: None)
  Receive Date: 20060309
  Receipt Date: 20060303
  Transmission Date: 20060701
  Serious: Yes (Death)
  Sender: FDA-Public Use
  Company Number: US-KINGPHARMUSA00001-K200600296

PATIENT
  Age: 16 Year
  Sex: Male

DRUGS (4)
  1. ALTACE [Suspect]
     Route: 048
     Dates: start: 20060227, end: 20060227
  2. ALEPSAL [Suspect]
     Dates: start: 20060227, end: 20060227
  3. DEXTROPROPOXYPHENE [Suspect]
     Dates: start: 20060227, end: 20060227
  4. ALCOHOL [Suspect]
     Dates: start: 20060227, end: 20060227

REACTIONS (3)
  - COMPLETED SUICIDE [None]
  - INTENTIONAL OVERDOSE [None]
  - MULTIPLE DRUG OVERDOSE INTENTIONAL [None]
